FAERS Safety Report 6584980-4 (Version None)
Quarter: 2010Q1

REPORT INFORMATION
  Report Type: 
  Country: None (occurrence: None)
  Receive Date: 20100217
  Receipt Date: 20100215
  Transmission Date: 20100710
  Serious: Yes (Other)
  Sender: FDA-Public Use
  Company Number: DE-SANOFI-AVENTIS-2010SA008578

PATIENT
  Age: 78 Year
  Sex: Female

DRUGS (4)
  1. MULTAQ [Suspect]
     Indication: DRUG USE FOR UNKNOWN INDICATION
     Route: 048
     Dates: start: 20100201, end: 20100201
  2. CARMEN [Concomitant]
     Indication: DRUG USE FOR UNKNOWN INDICATION
  3. DIOVANE [Concomitant]
     Indication: DRUG USE FOR UNKNOWN INDICATION
  4. TAMBOCOR [Concomitant]
     Indication: DRUG USE FOR UNKNOWN INDICATION

REACTIONS (6)
  - ASTHENIA [None]
  - DECREASED APPETITE [None]
  - DYSGEUSIA [None]
  - FATIGUE [None]
  - LABELLED DRUG-DRUG INTERACTION MEDICATION ERROR [None]
  - SUDDEN HEARING LOSS [None]
